FAERS Safety Report 10076954 (Version 2)
Quarter: 2014Q2

REPORT INFORMATION
  Report Type: Report from Study
  Country: BR (occurrence: BR)
  Receive Date: 20140414
  Receipt Date: 20140422
  Transmission Date: 20141212
  Serious: Yes (Other)
  Sender: FDA-Public Use
  Company Number: BR-GLAXOSMITHKLINE-B0985422A

PATIENT
  Sex: Male
  Weight: 75 kg

DRUGS (4)
  1. RYTHMOL [Suspect]
     Indication: ARRHYTHMIA
     Dosage: 300MG PER DAY
     Route: 048
  2. ACETYLSALICYLIC ACID [Concomitant]
  3. XARELTO [Concomitant]
     Indication: THROMBOSIS PROPHYLAXIS
     Dosage: 20MG PER DAY
     Dates: start: 20140325
  4. ATENOLOL [Concomitant]

REACTIONS (2)
  - Arrhythmia [Not Recovered/Not Resolved]
  - Urinary tract infection [Recovered/Resolved]
